FAERS Safety Report 5356771-3 (Version None)
Quarter: 2007Q2

REPORT INFORMATION
  Report Type: 
  Country: None (occurrence: None)
  Receive Date: 20070614
  Receipt Date: 20060522
  Transmission Date: 20071010
  Serious: No
  Sender: FDA-Public Use
  Company Number: US-ASTRAZENECA-2006UW10019

PATIENT
  Age: 40 Year
  Sex: Male

DRUGS (3)
  1. ATACAND [Suspect]
     Route: 048
  2. LOTREL [Concomitant]
     Dosage: 5/10 MG
     Route: 048
  3. NORVASC [Concomitant]
     Route: 048

REACTIONS (4)
  - FLANK PAIN [None]
  - FLUID RETENTION [None]
  - OEDEMA PERIPHERAL [None]
  - RENAL PAIN [None]
